FAERS Safety Report 4649329-2 (Version None)
Quarter: 2005Q2

REPORT INFORMATION
  Report Type: 
  Country: None (occurrence: None)
  Receive Date: 20050429
  Receipt Date: 20050421
  Transmission Date: 20051028
  Serious: Yes (Hospitalization)
  Sender: FDA-Public Use
  Company Number: US-ABBOTT-05P-163-0298201-00

PATIENT
  Age: 30 Year
  Sex: Male

DRUGS (6)
  1. VALPROIC ACID [Suspect]
     Indication: CONVULSION
     Dosage: DAILY
     Route: 048
  2. VALPROIC ACID [Suspect]
     Indication: MILD MENTAL RETARDATION
  3. TOPIRAMATE [Interacting]
     Indication: CONVULSION
     Dosage: DAILY
     Route: 048
  4. TOPIRAMATE [Interacting]
     Indication: MILD MENTAL RETARDATION
     Route: 048
  5. LORAZEPAM [Concomitant]
     Indication: CONVULSION
     Dosage: DAILY
     Route: 048
  6. LORAZEPAM [Concomitant]
     Indication: MILD MENTAL RETARDATION

REACTIONS (4)
  - DRUG INTERACTION [None]
  - DRUG LEVEL INCREASED [None]
  - ENCEPHALOPATHY [None]
  - HYPERAMMONAEMIA [None]
